FAERS Safety Report 9324700 (Version 2)
Quarter: 2013Q3

REPORT INFORMATION
  Report Type: Spontaneous
  Country: JP (occurrence: JP)
  Receive Date: 20130603
  Receipt Date: 20130719
  Transmission Date: 20140515
  Serious: Yes (Hospitalization)
  Sender: FDA-Public Use
  Company Number: JP-GLAXOSMITHKLINE-B0895773A

PATIENT
  Age: 63 Year
  Sex: Female
  Weight: 61 kg

DRUGS (2)
  1. HYCAMTIN [Suspect]
     Indication: OVARIAN CANCER RECURRENT
     Route: 042
     Dates: start: 20121022, end: 20121220
  2. GRANISETRON [Concomitant]
     Dosage: 1MG PER DAY
     Route: 042
     Dates: start: 20121022, end: 20121220

REACTIONS (9)
  - Ileus [Not Recovered/Not Resolved]
  - White blood cell count decreased [Recovered/Resolved]
  - Neutrophil count decreased [Recovered/Resolved]
  - Red blood cell count decreased [Recovering/Resolving]
  - Platelet count decreased [Recovered/Resolved]
  - Anaemia [Recovering/Resolving]
  - Blood urea increased [Unknown]
  - Decreased appetite [Recovering/Resolving]
  - Nausea [Unknown]
